FAERS Safety Report 15245953 (Version 1)
Quarter: 2018Q3

REPORT INFORMATION
  Report Type: Spontaneous
  Country: AR (occurrence: AR)
  Receive Date: 20180806
  Receipt Date: 20180806
  Transmission Date: 20181010
  Serious: Yes (Other)
  Sender: FDA-Public Use
  Company Number: AR-PFIZER INC-2018310579

PATIENT
  Age: 30 Year
  Sex: Female

DRUGS (2)
  1. FARLUTALE [Suspect]
     Active Substance: MEDROXYPROGESTERONE ACETATE
     Indication: TURNER^S SYNDROME
  2. PREMARIN [Suspect]
     Active Substance: ESTROGENS, CONJUGATED

REACTIONS (3)
  - Bone disorder [Unknown]
  - Haemorrhage [Unknown]
  - Product use in unapproved indication [Unknown]
